FAERS Safety Report 20775042 (Version 2)
Quarter: 2023Q2

REPORT INFORMATION
  Report Type: Report from Study
  Country: GB (occurrence: None)
  Receive Date: 20220502
  Receipt Date: 20230413
  Transmission Date: 20230722
  Serious: No
  Sender: FDA-Public Use
  Company Number: GB-Spark Therapeutics, Inc.-GB-SPK-21-00104

PATIENT
  Age: 14 Year
  Sex: Female
  Weight: 90.5 kg

DRUGS (6)
  1. VORETIGENE NEPARVOVEC [Suspect]
     Active Substance: VORETIGENE NEPARVOVEC
     Indication: Leber^s congenital amaurosis
     Dates: start: 20210609, end: 20210609
  2. VORETIGENE NEPARVOVEC [Suspect]
     Active Substance: VORETIGENE NEPARVOVEC
     Indication: Retinal dystrophy
  3. VORETIGENE NEPARVOVEC [Suspect]
     Active Substance: VORETIGENE NEPARVOVEC
     Indication: RPE65 gene mutation
  4. VORETIGENE NEPARVOVEC [Suspect]
     Active Substance: VORETIGENE NEPARVOVEC
     Indication: Leber^s congenital amaurosis
     Dates: start: 20210609, end: 20210609
  5. VORETIGENE NEPARVOVEC [Suspect]
     Active Substance: VORETIGENE NEPARVOVEC
     Indication: Retinal dystrophy
  6. VORETIGENE NEPARVOVEC [Suspect]
     Active Substance: VORETIGENE NEPARVOVEC
     Indication: RPE65 gene mutation

REACTIONS (19)
  - Iridocyclitis [Recovered/Resolved]
  - Arthropod bite [Recovered/Resolved]
  - Intraocular pressure fluctuation [Recovering/Resolving]
  - Intraocular pressure fluctuation [Recovering/Resolving]
  - COVID-19 [Recovered/Resolved]
  - Headache [Recovered/Resolved]
  - Foreign body sensation in eyes [Recovered/Resolved]
  - Headache [Not Recovered/Not Resolved]
  - Arthralgia [Not Recovered/Not Resolved]
  - Swelling face [Recovered/Resolved]
  - Eye inflammation [Recovered/Resolved]
  - Eye inflammation [Recovered/Resolved]
  - Intraocular pressure increased [Recovered/Resolved]
  - Intraocular pressure increased [Recovered/Resolved]
  - Intraocular pressure increased [Recovered/Resolved]
  - Eye pain [Recovered/Resolved]
  - Eye pain [Recovered/Resolved]
  - Vision blurred [Recovered/Resolved]
  - Vision blurred [Recovered/Resolved]

NARRATIVE: CASE EVENT DATE: 20210610
